FAERS Safety Report 25564308 (Version 1)
Quarter: 2025Q3

REPORT INFORMATION
  Report Type: Spontaneous
  Country: US (occurrence: US)
  Receive Date: 20250716
  Receipt Date: 20250716
  Transmission Date: 20251021
  Serious: No
  Sender: NOVO NORDISK
  Company Number: US-NOVOPROD-1292639

PATIENT

DRUGS (3)
  1. OZEMPIC [Suspect]
     Active Substance: SEMAGLUTIDE
     Indication: Type 2 diabetes mellitus
     Dosage: 0.5 MG, QW
     Route: 058
  2. LYUMJEV [Concomitant]
     Active Substance: INSULIN LISPRO-AABC
     Indication: Product used for unknown indication
     Dates: start: 202406
  3. 1-(2-(2-BENZYLPHENOXY)-1-METHYLETHYL)PIPERIDINIUM DIHYDROGEN PHOSPHATE [Concomitant]
     Indication: Product used for unknown indication

REACTIONS (4)
  - Acne [Not Recovered/Not Resolved]
  - Infrequent bowel movements [Not Recovered/Not Resolved]
  - Injection site bruising [Not Recovered/Not Resolved]
  - Constipation [Not Recovered/Not Resolved]
